FAERS Safety Report 18661453 (Version 1)
Quarter: 2020Q4

REPORT INFORMATION
  Report Type: Report from Study
  Country: US (occurrence: US)
  Receive Date: 20201224
  Receipt Date: 20201224
  Transmission Date: 20210114
  Serious: Yes (Hospitalization, Other)
  Sender: FDA-Public Use
  Company Number: US-TAKEDA-US202000413

PATIENT
  Age: 65 Year
  Sex: Male

DRUGS (4)
  1. FIRAZYR [Concomitant]
     Active Substance: ICATIBANT ACETATE
     Indication: PRODUCT USED FOR UNKNOWN INDICATION
  2. 643 (LANADELUMAB) [Suspect]
     Active Substance: LANADELUMAB
     Dosage: 300 MILLIGRAM, PRN
     Route: 058
     Dates: start: 201902
  3. KALBITOR [Concomitant]
     Active Substance: ECALLANTIDE
     Indication: PRODUCT USED FOR UNKNOWN INDICATION
  4. 643 (LANADELUMAB) [Suspect]
     Active Substance: LANADELUMAB
     Indication: HEREDITARY ANGIOEDEMA
     Dosage: 300 MILLIGRAM, 2/WEEK
     Route: 058
     Dates: start: 20181016

REACTIONS (2)
  - Hereditary angioedema [Recovering/Resolving]
  - Laryngeal oedema [Unknown]

NARRATIVE: CASE EVENT DATE: 20191009
